FAERS Safety Report 20633848 (Version 2)
Quarter: 2022Q2

REPORT INFORMATION
  Report Type: Spontaneous
  Country: US (occurrence: US)
  Receive Date: 20220324
  Receipt Date: 20220408
  Transmission Date: 20220721
  Serious: No
  Sender: FDA-Public Use
  Company Number: US-SUNOVION-2022SUN000873

PATIENT
  Sex: Female

DRUGS (2)
  1. LATUDA [Suspect]
     Active Substance: LURASIDONE HYDROCHLORIDE
     Indication: Bipolar disorder
     Dosage: 80 MG
     Route: 048
  2. LATUDA [Suspect]
     Active Substance: LURASIDONE HYDROCHLORIDE
     Indication: Psychotic disorder
     Dosage: 40 MG
     Route: 048

REACTIONS (6)
  - Head discomfort [Unknown]
  - Feeling abnormal [Unknown]
  - Drug ineffective [Unknown]
  - Anxiety [Unknown]
  - Restlessness [Unknown]
  - Sleep disorder [Unknown]
